FAERS Safety Report 6884721-7 (Version None)
Quarter: 2010Q3

REPORT INFORMATION
  Report Type: 
  Country: None (occurrence: None)
  Receive Date: 20100729
  Receipt Date: 20070809
  Transmission Date: 20110219
  Serious: No
  Sender: FDA-Public Use
  Company Number: US-PFIZER INC-2007067066

PATIENT
  Sex: Male
  Weight: 131.81 kg

DRUGS (6)
  1. CELEBREX [Suspect]
     Indication: SWELLING
     Dates: start: 20070728
  2. CELEBREX [Suspect]
     Indication: INFLAMMATION
  3. COREG [Concomitant]
  4. VYTORIN [Concomitant]
  5. VICODIN [Concomitant]
  6. NEXIUM [Concomitant]

REACTIONS (2)
  - BURNING SENSATION [None]
  - GLOSSODYNIA [None]
